FAERS Safety Report 7704877-3 (Version None)
Quarter: 2011Q3

REPORT INFORMATION
  Report Type: 
  Country: None (occurrence: None)
  Receive Date: 20110823
  Receipt Date: 20110808
  Transmission Date: 20111222
  Serious: Yes (Hospitalization)
  Sender: FDA-Public Use
  Company Number: DE-JUTA GMBH-2011-13246

PATIENT

DRUGS (2)
  1. VERAPAMIL HCL [Suspect]
     Indication: HYPERTENSION
     Dosage: UNK
  2. DOXAZOSIN MESYLATE [Suspect]
     Indication: HYPERTENSION
     Dosage: UNK

REACTIONS (7)
  - HYPERTENSION [None]
  - HEADACHE [None]
  - PALPITATIONS [None]
  - TREMOR [None]
  - OEDEMA [None]
  - NOCTURIA [None]
  - ATRIAL FIBRILLATION [None]
